FAERS Safety Report 17303180 (Version 2)
Quarter: 2020Q2

REPORT INFORMATION
  Report Type: Report from Study
  Country: US (occurrence: US)
  Receive Date: 20200122
  Receipt Date: 20200526
  Transmission Date: 20200713
  Serious: No
  Sender: FDA-Public Use
  Company Number: US-SA-2020SA016231

PATIENT
  Age: 41 Year
  Sex: Male
  Weight: 88.44 kg

DRUGS (4)
  1. DUPILUMAB [Suspect]
     Active Substance: DUPILUMAB
     Indication: NASAL POLYPS
  2. FASENRA [Concomitant]
     Active Substance: BENRALIZUMAB
     Dosage: UNK
     Dates: start: 201905
  3. EZETIMIBE. [Concomitant]
     Active Substance: EZETIMIBE
     Indication: BLOOD CHOLESTEROL
  4. DUPILUMAB [Suspect]
     Active Substance: DUPILUMAB
     Indication: ASTHMA
     Dosage: 300 MG, QOW
     Route: 058
     Dates: start: 20190624

REACTIONS (4)
  - Arthralgia [Unknown]
  - Joint stiffness [Unknown]
  - Condition aggravated [Unknown]
  - Paraesthesia [Recovered/Resolved]
